FAERS Safety Report 7573989-X (Version None)
Quarter: 2011Q2

REPORT INFORMATION
  Report Type: 
  Country: None (occurrence: None)
  Receive Date: 20110627
  Receipt Date: 20110622
  Transmission Date: 20111010
  Serious: Yes (Life-Threatening)
  Sender: FDA-Public Use
  Company Number: JP-ASTRAZENECA-2011SE36765

PATIENT
  Age: 79 Year
  Sex: Female

DRUGS (11)
  1. CRESTOR [Concomitant]
     Indication: HYPERCHOLESTEROLAEMIA
     Route: 048
     Dates: start: 20110506, end: 20110516
  2. IRESSA [Suspect]
     Indication: NON-SMALL CELL LUNG CANCER
     Route: 048
     Dates: start: 20101215, end: 20110202
  3. AMLODIPINE [Concomitant]
     Indication: HYPERTENSION
     Route: 048
     Dates: start: 20110506, end: 20110516
  4. IRESSA [Suspect]
     Route: 048
     Dates: start: 20110508, end: 20110516
  5. UNKNOWNDRUG [Concomitant]
     Indication: BRONCHITIS
     Dosage: 1/3 OF DAILY DOSE, TID
     Route: 048
     Dates: start: 20110506, end: 20110512
  6. LEVOTHYROXINE SODIUM [Concomitant]
     Indication: HYPOTHYROIDISM
     Route: 048
     Dates: start: 20110506, end: 20110516
  7. GASPORT-D [Concomitant]
     Indication: GASTRIC ULCER
     Route: 048
     Dates: start: 20110506, end: 20110516
  8. BASEN [Concomitant]
     Indication: DIABETES MELLITUS
     Route: 048
     Dates: start: 20110506, end: 20110516
  9. BROTIZOLAM [Concomitant]
     Indication: INSOMNIA
     Route: 048
     Dates: start: 20110506, end: 20110516
  10. IRESSA [Suspect]
     Route: 048
     Dates: start: 20110226, end: 20110507
  11. BIOFERMIN [Concomitant]
     Indication: DIARRHOEA
     Route: 048
     Dates: start: 20110506, end: 20110512

REACTIONS (2)
  - GASTROINTESTINAL PERFORATION [None]
  - LIVER FUNCTION TEST ABNORMAL [None]
